FAERS Safety Report 17831043 (Version 4)
Quarter: 2020Q2

REPORT INFORMATION
  Report Type: Spontaneous
  Country: US (occurrence: US)
  Receive Date: 20200527
  Receipt Date: 20200626
  Transmission Date: 20200714
  Serious: No
  Sender: FDA-Public Use
  Company Number: US-ACTELION-A-US2020-205214

PATIENT
  Age: 80 Year
  Sex: Female

DRUGS (9)
  1. LASIX [Concomitant]
     Active Substance: FUROSEMIDE
  2. VITAMIN C [Concomitant]
     Active Substance: ASCORBIC ACID
  3. CARVEDILOL. [Concomitant]
     Active Substance: CARVEDILOL
  4. EPLERENONE. [Concomitant]
     Active Substance: EPLERENONE
  5. PRAVASTATIN. [Concomitant]
     Active Substance: PRAVASTATIN
  6. OPSUMIT [Suspect]
     Active Substance: MACITENTAN
     Indication: PULMONARY ARTERIAL HYPERTENSION
     Dosage: 10 MG, QD
     Route: 048
     Dates: start: 20200312
  7. VITAMIN D [COLECALCIFEROL] [Concomitant]
     Active Substance: CHOLECALCIFEROL
  8. SILDENAFIL. [Concomitant]
     Active Substance: SILDENAFIL
     Dosage: UNK, BID
  9. TADALAFIL. [Concomitant]
     Active Substance: TADALAFIL

REACTIONS (8)
  - Malaise [Unknown]
  - Oedema peripheral [Unknown]
  - Blood potassium decreased [Unknown]
  - Fluid retention [Unknown]
  - Ascites [Unknown]
  - Anaemia [Recovering/Resolving]
  - Diarrhoea [Unknown]
  - Asthenia [Unknown]

NARRATIVE: CASE EVENT DATE: 202006
